FAERS Safety Report 6318428-1 (Version None)
Quarter: 2009Q3

REPORT INFORMATION
  Report Type: 
  Country: None (occurrence: None)
  Receive Date: 20090821
  Receipt Date: 20090811
  Transmission Date: 20100115
  Serious: Yes (Death, Other)
  Sender: FDA-Public Use
  Company Number: JP-PFIZER INC-2009248649

PATIENT
  Age: 77 Year

DRUGS (2)
  1. ZYVOX [Suspect]
     Indication: BACTERAEMIA
     Dosage: 600 MG, 2X/DAY
     Route: 042
     Dates: start: 20090717, end: 20090723
  2. VANCOMYCIN HYDROCHLORIDE [Concomitant]

REACTIONS (2)
  - HEPATORENAL FAILURE [None]
  - PANCYTOPENIA [None]
